FAERS Safety Report 22166396 (Version 1)
Quarter: 2023Q1

REPORT INFORMATION
  Report Type: Spontaneous
  Country: US (occurrence: None)
  Receive Date: 20230331
  Receipt Date: 20230331
  Transmission Date: 20230417
  Serious: No
  Sender: FDA-Public Use
  Company Number: None

PATIENT
  Age: 58 Year
  Sex: Female

DRUGS (1)
  1. HUMIRA [Suspect]
     Active Substance: ADALIMUMAB
     Indication: Ankylosing spondylitis
     Route: 058
     Dates: start: 202303, end: 202303

REACTIONS (4)
  - Palpitations [None]
  - Heart rate increased [None]
  - Heart rate decreased [None]
  - Therapy cessation [None]

NARRATIVE: CASE EVENT DATE: 20230331
